FAERS Safety Report 5852525-X (Version None)
Quarter: 2008Q3

REPORT INFORMATION
  Report Type: 
  Country: None (occurrence: None)
  Receive Date: 20080820
  Receipt Date: 20080820
  Transmission Date: 20090109
  Serious: Yes (Life-Threatening, Other)
  Sender: FDA-Public Use
  Company Number: None

PATIENT
  Age: 53 Year
  Sex: Female
  Weight: 109.7705 kg

DRUGS (1)
  1. SORIATANE [Suspect]
     Indication: PSORIASIS
     Dosage: 1 CAPSULE 1 X DAY OTHER
     Route: 050
     Dates: start: 20080731, end: 20080815

REACTIONS (2)
  - HEADACHE [None]
  - SUICIDAL IDEATION [None]
